FAERS Safety Report 4341410-0 (Version None)
Quarter: 2004Q2

REPORT INFORMATION
  Report Type: 
  Country: None (occurrence: None)
  Receive Date: 20040415
  Receipt Date: 20040318
  Transmission Date: 20050107
  Serious: Yes (Death)
  Sender: FDA-Public Use
  Company Number: 04P-107-0253564-00

PATIENT
  Age: 48 Year
  Sex: Male
  Weight: 80 kg

DRUGS (6)
  1. SEVORANE (ULTANE LIQUID FOR INHALATION) (SEVOFLURANE) (SEVOFLURANE) [Suspect]
     Indication: ANAESTHESIA
     Dosage: INHALATION
     Route: 055
     Dates: start: 20040202, end: 20040202
  2. PROPOFOL [Concomitant]
  3. FUROSEMIDE [Concomitant]
  4. PANCURONIC [Concomitant]
  5. CEFTRIAXONE SODIUM [Concomitant]
  6. DYNASTAT [Concomitant]

REACTIONS (7)
  - ANXIETY [None]
  - FUNGAL INFECTION [None]
  - GASTROINTESTINAL HAEMORRHAGE [None]
  - HEPATIC NECROSIS [None]
  - HEPATITIS [None]
  - HYPOXIA [None]
  - PAIN [None]
